FAERS Safety Report 4714045-5 (Version None)
Quarter: 2005Q3

REPORT INFORMATION
  Report Type: 
  Country: None (occurrence: None)
  Receive Date: 20050714
  Receipt Date: 20050705
  Transmission Date: 20060218
  Serious: Yes (Other)
  Sender: FDA-Public Use
  Company Number: JP-ABBOTT-05P-087-0305062-00

PATIENT
  Age: 24 Year
  Sex: Male
  Weight: 68 kg

DRUGS (4)
  1. CLARITHROMYCIN [Suspect]
     Indication: HELICOBACTER INFECTION
     Route: 048
     Dates: start: 20041015, end: 20041019
  2. AMOXICILLIN [Suspect]
     Indication: HELICOBACTER INFECTION
     Route: 048
     Dates: start: 20041015, end: 20041019
  3. LANSOPRAZOLE [Concomitant]
     Indication: HELICOBACTER INFECTION
     Route: 048
     Dates: start: 20041015
  4. SOFALCONE [Concomitant]
     Indication: HELICOBACTER INFECTION
     Route: 048
     Dates: start: 20041015

REACTIONS (7)
  - ABDOMINAL PAIN UPPER [None]
  - ABNORMAL FAECES [None]
  - BACTERIA STOOL IDENTIFIED [None]
  - CLOSTRIDIUM COLITIS [None]
  - DIARRHOEA [None]
  - FAECES DISCOLOURED [None]
  - HAEMATOCHEZIA [None]
